FAERS Safety Report 19971432 (Version 3)
Quarter: 2022Q3

REPORT INFORMATION
  Report Type: Spontaneous
  Country: JP (occurrence: JP)
  Receive Date: 20211019
  Receipt Date: 20220714
  Transmission Date: 20221026
  Serious: Yes (Other)
  Sender: FDA-Public Use
  Company Number: JP-GSKNCCC-CASE-01328773_AE-50572

PATIENT

DRUGS (5)
  1. ZOVIRAX [Suspect]
     Active Substance: ACYCLOVIR
     Indication: Prophylaxis
     Dosage: 200 MG, QD
     Dates: end: 202109
  2. SULFAMETHOXAZOLE\TRIMETHOPRIM [Suspect]
     Active Substance: SULFAMETHOXAZOLE\TRIMETHOPRIM
     Indication: Prophylaxis
     Dosage: UNK
     Dates: end: 202109
  3. PREDONINE [Suspect]
     Active Substance: PREDNISOLONE
     Indication: Angioimmunoblastic T-cell lymphoma
     Dosage: UNK
  4. PREDONINE [Suspect]
     Active Substance: PREDNISOLONE
     Dosage: 1 MG
  5. BEVACIZUMAB [Concomitant]
     Active Substance: BEVACIZUMAB
     Indication: Angioimmunoblastic T-cell lymphoma
     Dosage: UNK
     Dates: end: 202008

REACTIONS (4)
  - Herpes zoster disseminated [Unknown]
  - Rash [Unknown]
  - Product use in unapproved indication [Unknown]
  - Off label use [Unknown]

NARRATIVE: CASE EVENT DATE: 20210927
